FAERS Safety Report 25673261 (Version 2)
Quarter: 2025Q4

REPORT INFORMATION
  Report Type: Report from Study
  Country: US (occurrence: US)
  Receive Date: 20250813
  Receipt Date: 20251111
  Transmission Date: 20260118
  Serious: Yes (Hospitalization, Other)
  Sender: ACADIA PHARMACEUTICALS
  Company Number: US-ACADIA PHARMACEUTICALS INC.-ACA-2025-PIM-009104

PATIENT
  Age: 70 Year
  Sex: Male

DRUGS (20)
  1. NUPLAZID [Suspect]
     Active Substance: PIMAVANSERIN TARTRATE
     Indication: Parkinson^s disease psychosis
     Dosage: 34 MILLIGRAM, QD
     Route: 048
     Dates: start: 20250127
  2. QUETIAPINE FUMARATE [Concomitant]
     Active Substance: QUETIAPINE FUMARATE
     Dosage: UNK
  3. OMEPRAZOLE [Concomitant]
     Active Substance: OMEPRAZOLE
  4. SINEMET [Concomitant]
     Active Substance: CARBIDOPA\LEVODOPA
  5. ADVIL COLD AND SINUS [Concomitant]
     Active Substance: IBUPROFEN\PSEUDOEPHEDRINE HYDROCHLORIDE
  6. ATORVASTATIN [Concomitant]
     Active Substance: ATORVASTATIN
  7. DICLOFENAC [Concomitant]
     Active Substance: DICLOFENAC
  8. DICYCLOMINE [Concomitant]
     Active Substance: DICYCLOMINE HYDROCHLORIDE
  9. FLUTICASONE [Concomitant]
     Active Substance: FLUTICASONE
     Dosage: NASAL
  10. MIDODRINE [Concomitant]
     Active Substance: MIDODRINE
  11. MUPIROCIN [Concomitant]
     Active Substance: MUPIROCIN
  12. RIVASTIGMINE [Concomitant]
     Active Substance: RIVASTIGMINE
  13. TRAMADOL [Concomitant]
     Active Substance: TRAMADOL
  14. CIPROFLOXACIN [Concomitant]
     Active Substance: CIPROFLOXACIN
  15. GLYCOPYRROLATE [Concomitant]
     Active Substance: GLYCOPYRROLATE
  16. BENZONATATE [Concomitant]
     Active Substance: BENZONATATE
  17. BACLOFEN [Concomitant]
     Active Substance: BACLOFEN
  18. ZONISAMIDE [Concomitant]
     Active Substance: ZONISAMIDE
  19. TAMSULOSIN [Concomitant]
     Active Substance: TAMSULOSIN
  20. TRIAMCINOLONE [Concomitant]
     Active Substance: TRIAMCINOLONE

REACTIONS (6)
  - Abdominal pain upper [Recovered/Resolved]
  - Gastroenteritis viral [Recovered/Resolved]
  - Constipation [Recovered/Resolved]
  - Hallucination [Not Recovered/Not Resolved]
  - Nightmare [Not Recovered/Not Resolved]
  - Gait disturbance [Recovered/Resolved]

NARRATIVE: CASE EVENT DATE: 20251008
